FAERS Safety Report 5503785-6 (Version None)
Quarter: 2007Q4

REPORT INFORMATION
  Report Type: 
  Country: None (occurrence: None)
  Receive Date: 20071101
  Receipt Date: 20071029
  Transmission Date: 20080405
  Serious: Yes (Hospitalization, Other)
  Sender: FDA-Public Use
  Company Number: FR-BRISTOL-MYERS SQUIBB COMPANY-13961321

PATIENT
  Age: 57 Year
  Sex: Male

DRUGS (9)
  1. PARAPLATIN [Suspect]
     Indication: LUNG NEOPLASM MALIGNANT
     Dosage: STARTED ON 17APR07,CUMULATIVE DOSE TO 2291 MG
     Route: 042
     Dates: start: 20070629, end: 20070629
  2. TAXOL INJ 100 MG/16.7 ML [Suspect]
     Indication: LUNG NEOPLASM MALIGNANT
     Dates: start: 20070629, end: 20070629
  3. GEMZAR [Suspect]
     Dosage: WITH A TOTAL CUMULATIVE DOSE OF 34326.8MG (1930MG AT LATEST COURSE).
     Dates: start: 20060919, end: 20070315
  4. CISPLATIN [Suspect]
     Dates: start: 20060919, end: 20061128
  5. TAXOTERE [Suspect]
     Dates: start: 20070417, end: 20070510
  6. ALIMTA [Suspect]
     Dates: start: 20070608
  7. RADIOTHERAPY [Suspect]
     Dates: start: 20070712
  8. PREVISCAN [Concomitant]
  9. DOLIPRANE [Concomitant]

REACTIONS (2)
  - PANCYTOPENIA [None]
  - SUPERIOR VENA CAVAL OCCLUSION [None]
